FAERS Safety Report 20821080 (Version 1)
Quarter: 2022Q2

REPORT INFORMATION
  Report Type: Spontaneous
  Country: US (occurrence: None)
  Receive Date: 20220512
  Receipt Date: 20220512
  Transmission Date: 20220721
  Serious: No
  Sender: FDA-Public Use
  Company Number: None

PATIENT
  Age: 77 Year
  Sex: Male

DRUGS (9)
  1. NOURIANZ [Suspect]
     Active Substance: ISTRADEFYLLINE
  2. ALFUZOSIN [Concomitant]
     Active Substance: ALFUZOSIN
  3. CRESTOR [Concomitant]
     Active Substance: ROSUVASTATIN CALCIUM
  4. MYRBETRIQ [Concomitant]
     Active Substance: MIRABEGRON
  5. PROTONIX [Concomitant]
     Active Substance: PANTOPRAZOLE SODIUM
  6. RYTARY [Concomitant]
     Active Substance: CARBIDOPA\LEVODOPA
  7. SINEMET CR [Concomitant]
     Active Substance: CARBIDOPA\LEVODOPA
  8. PRESERVISION EYE VITAMINS [Concomitant]
  9. VITAMIN B-12 [Concomitant]

REACTIONS (1)
  - Dizziness [None]
